FAERS Safety Report 15980306 (Version 2)
Quarter: 2019Q1

REPORT INFORMATION
  Report Type: Report from Study
  Country: CR (occurrence: CR)
  Receive Date: 20190219
  Receipt Date: 20190306
  Transmission Date: 20190418
  Serious: No
  Sender: FDA-Public Use
  Company Number: PHHY2019CR037111

PATIENT
  Age: 84 Year
  Sex: Female

DRUGS (3)
  1. NATRILIX - SLOW RELEASE [Concomitant]
     Active Substance: INDAPAMIDE
     Indication: HYPERTENSION
     Dosage: 1 DF, QD
     Route: 048
  2. CONCOR [Concomitant]
     Active Substance: BISOPROLOL FUMARATE
     Indication: HYPERTENSION
     Dosage: 1 DF, QD
     Route: 048
  3. DIOVAN [Suspect]
     Active Substance: VALSARTAN
     Indication: HYPERTENSION
     Dosage: 1 DF, QD
     Route: 048

REACTIONS (4)
  - Viral infection [Recovered/Resolved]
  - Visual impairment [Unknown]
  - Diarrhoea [Recovered/Resolved]
  - Cow^s milk intolerance [Recovered/Resolved]
